FAERS Safety Report 5350033-6 (Version None)
Quarter: 2007Q2

REPORT INFORMATION
  Report Type: 
  Country: None (occurrence: None)
  Receive Date: 20070510
  Receipt Date: 20061103
  Transmission Date: 20071010
  Serious: Yes (Other)
  Sender: FDA-Public Use
  Company Number: 2006S1000249

PATIENT
  Age: 77 Year
  Sex: Female
  Weight: 61 kg

DRUGS (7)
  1. CUBICIN [Suspect]
     Indication: ENTEROCOCCAL BACTERAEMIA
     Dosage: 300 MG; Q24H; IV
     Route: 042
     Dates: start: 20061018, end: 20061023
  2. METOPROLOL SUCCINATE [Concomitant]
  3. AMIODARONE [Concomitant]
  4. ISOSORBIDE MONONITRATE [Concomitant]
  5. HYDROCHLOROTHIAZIDE [Concomitant]
  6. MOXIFLOXACIN HCL [Concomitant]
  7. TERAZOSIN HCL [Concomitant]

REACTIONS (4)
  - EOSINOPHILIA [None]
  - EOSINOPHILIC PNEUMONIA [None]
  - PRURITUS [None]
  - URTICARIA [None]
